FAERS Safety Report 15622611 (Version 1)
Quarter: 2018Q4

REPORT INFORMATION
  Report Type: Spontaneous
  Country: US (occurrence: US)
  Receive Date: 20181115
  Receipt Date: 20181115
  Transmission Date: 20190205
  Serious: Yes (Hospitalization)
  Sender: FDA-Public Use
  Company Number: US-JNJFOC-20181107966

PATIENT
  Age: 75 Year
  Sex: Female
  Weight: 81.19 kg

DRUGS (2)
  1. XARELTO [Suspect]
     Active Substance: RIVAROXABAN
     Indication: ATRIAL FIBRILLATION
     Route: 048
     Dates: start: 201508
  2. XARELTO [Suspect]
     Active Substance: RIVAROXABAN
     Indication: CEREBROVASCULAR ACCIDENT PROPHYLAXIS
     Route: 048
     Dates: start: 201508

REACTIONS (3)
  - Hernia [Recovered/Resolved]
  - Clostridium difficile infection [Not Recovered/Not Resolved]
  - Gastrointestinal procedural complication [Recovered/Resolved]

NARRATIVE: CASE EVENT DATE: 201807
